FAERS Safety Report 17746182 (Version 1)
Quarter: 2020Q2

REPORT INFORMATION
  Report Type: Spontaneous
  Country: US (occurrence: US)
  Receive Date: 20200505
  Receipt Date: 20200505
  Transmission Date: 20200714
  Serious: No
  Sender: FDA-Public Use
  Company Number: US-AMGEN INC.-USASP2020071632

PATIENT
  Age: 46 Year
  Sex: Female

DRUGS (1)
  1. AIMOVIG [Suspect]
     Active Substance: ERENUMAB-AOOE
     Indication: MIGRAINE
     Dosage: 70 MILLIGRAM, QMO
     Route: 065
     Dates: start: 201910

REACTIONS (6)
  - Blister [Unknown]
  - Pruritus [Recovering/Resolving]
  - Injection site haemorrhage [Recovered/Resolved]
  - Pain of skin [Unknown]
  - Skin discolouration [Not Recovered/Not Resolved]
  - Scab [Unknown]

NARRATIVE: CASE EVENT DATE: 202004
